FAERS Safety Report 13748268 (Version 1)
Quarter: 2017Q3

REPORT INFORMATION
  Report Type: Spontaneous
  Country: CN (occurrence: CN)
  Receive Date: 20170713
  Receipt Date: 20170713
  Transmission Date: 20171127
  Serious: Yes (Hospitalization)
  Sender: FDA-Public Use
  Company Number: CN-ACCORD-053357

PATIENT
  Age: 45 Year
  Sex: Female

DRUGS (5)
  1. TRIHEXYPHENIDYL [Concomitant]
     Active Substance: TRIHEXYPHENIDYL
     Indication: SCHIZOPHRENIA
  2. LITHIUM. [Concomitant]
     Active Substance: LITHIUM
     Indication: SCHIZOPHRENIA
  3. RISPERIDONE. [Concomitant]
     Active Substance: RISPERIDONE
     Indication: SCHIZOPHRENIA
     Dosage: 2MG/D TO 5MG/D THEN
  4. CLOZAPINE. [Suspect]
     Active Substance: CLOZAPINE
     Indication: SCHIZOPHRENIA
     Dosage: RECEIVED 75 MG BID THEN 350 MG/D, 450 MG/D, 400 MG/D,325 MG/D,250 MG/D AND WITHDRAWN
  5. CHLORPROMAZINE. [Interacting]
     Active Substance: CHLORPROMAZINE
     Indication: SCHIZOPHRENIA
     Dosage: 100 MG BID THEN 250 MG/D GOING DOWN TO 100 MG/D OVER THE COURSE OF 5 DAYS, 200MG/D AND WITHDRAWAL

REACTIONS (11)
  - Urinary retention [Unknown]
  - White blood cell count increased [Recovered/Resolved]
  - Muscle tightness [Unknown]
  - Asthenia [Unknown]
  - Dysphagia [Unknown]
  - Drug level increased [Unknown]
  - Hallucination, auditory [Not Recovered/Not Resolved]
  - Withdrawal syndrome [Unknown]
  - Blood creatine phosphokinase increased [Recovered/Resolved]
  - Hyperhidrosis [Recovered/Resolved]
  - Drug interaction [Unknown]
